FAERS Safety Report 11414401 (Version 3)
Quarter: 2016Q3

REPORT INFORMATION
  Report Type: Report from Study
  Country: US (occurrence: US)
  Receive Date: 20150824
  Receipt Date: 20160819
  Transmission Date: 20161109
  Serious: Yes (Hospitalization)
  Sender: FDA-Public Use
  Company Number: US-ACTELION-A-US2014-107079

PATIENT
  Age: 88 Year
  Sex: Male

DRUGS (4)
  1. CARDIZEM CD [Concomitant]
     Active Substance: DILTIAZEM HYDROCHLORIDE
  2. OPSUMIT [Suspect]
     Active Substance: MACITENTAN
     Dosage: 10 MG, QD
     Route: 048
  3. COUMADIN [Concomitant]
     Active Substance: WARFARIN SODIUM
  4. OPSUMIT [Suspect]
     Active Substance: MACITENTAN
     Indication: PULMONARY ARTERIAL HYPERTENSION
     Dosage: 10 MG, QD
     Route: 048
     Dates: start: 20140702

REACTIONS (8)
  - Spinal fracture [Unknown]
  - Head injury [Unknown]
  - Fatigue [Unknown]
  - Cellulitis [Unknown]
  - Fall [Unknown]
  - Cerebral haematoma [Unknown]
  - Dyspnoea [Unknown]
  - Hypoacusis [Unknown]

NARRATIVE: CASE EVENT DATE: 20141127
